FAERS Safety Report 13753026 (Version 1)
Quarter: 2017Q3

REPORT INFORMATION
  Report Type: Spontaneous
  Country: US (occurrence: US)
  Receive Date: 20170713
  Receipt Date: 20170713
  Transmission Date: 20171127
  Serious: No
  Sender: FDA-Public Use
  Company Number: None

PATIENT
  Age: 50 Year
  Sex: Male

DRUGS (1)
  1. DUPIXENT [Suspect]
     Active Substance: DUPILUMAB
     Indication: DERMATITIS ATOPIC
     Route: 058
     Dates: start: 20170606

REACTIONS (9)
  - Oropharyngeal pain [None]
  - Chest pain [None]
  - Stomatitis [None]
  - Weight decreased [None]
  - Throat tightness [None]
  - Dyspnoea [None]
  - Swelling [None]
  - Urticaria [None]
  - Ear pain [None]

NARRATIVE: CASE EVENT DATE: 20170713
